FAERS Safety Report 5672559-8 (Version None)
Quarter: 2008Q2

REPORT INFORMATION
  Report Type: 
  Country: None (occurrence: None)
  Receive Date: 20080219
  Receipt Date: 20080107
  Transmission Date: 20081010
  Serious: No
  Sender: FDA-Public Use
  Company Number: TPA200800039

PATIENT
  Age: 82 Year
  Sex: Male
  Weight: 79.3795 kg

DRUGS (4)
  1. ROZEREM [Suspect]
     Indication: INSOMNIA
     Dosage: 8 MG, HS, PER ORAL
     Route: 048
     Dates: start: 20080103
  2. DALMANE [Concomitant]
  3. TRAZODONE HCL [Concomitant]
  4. UNSPECIFIED MEDICATIONS(ALL OTHER THERAPEUTIC PRODUCTS) [Concomitant]

REACTIONS (3)
  - FATIGUE [None]
  - HEADACHE [None]
  - SOMNOLENCE [None]
